FAERS Safety Report 19209961 (Version 2)
Quarter: 2021Q2

REPORT INFORMATION
  Report Type: Spontaneous
  Country: US (occurrence: US)
  Receive Date: 20210504
  Receipt Date: 20210504
  Transmission Date: 20210717
  Serious: Yes (Hospitalization)
  Sender: FDA-Public Use
  Company Number: US-BIOGEN-2007BI007964

PATIENT
  Age: 66 Year
  Sex: Female
  Weight: 86.71 kg

DRUGS (8)
  1. AVONEX PEN [Suspect]
     Active Substance: INTERFERON BETA-1A
     Route: 030
  2. AVONEX [Suspect]
     Active Substance: INTERFERON BETA-1A
     Indication: MULTIPLE SCLEROSIS
     Route: 030
     Dates: start: 200308, end: 20120722
  3. AMPYRA [Concomitant]
     Active Substance: DALFAMPRIDINE
     Indication: PRODUCT USED FOR UNKNOWN INDICATION
     Route: 048
  4. AVONEX [Suspect]
     Active Substance: INTERFERON BETA-1A
     Indication: MULTIPLE SCLEROSIS
     Route: 030
     Dates: start: 19971018, end: 200308
  5. AVONEX PEN [Suspect]
     Active Substance: INTERFERON BETA-1A
     Indication: MULTIPLE SCLEROSIS
     Route: 030
     Dates: start: 20120729
  6. ZANAFLEX [Concomitant]
     Active Substance: TIZANIDINE HYDROCHLORIDE
     Indication: MUSCLE SPASMS
     Route: 065
  7. AVONEX [Suspect]
     Active Substance: INTERFERON BETA-1A
     Indication: MULTIPLE SCLEROSIS
     Route: 030
     Dates: start: 19971018
  8. VITAMIN B COMPLEX [Concomitant]
     Active Substance: CYANOCOBALAMIN\DEXPANTHENOL\NIACINAMIDE\PYRIDOXINE HYDROCHLORIDE\RIBOFLAVIN 5^-PHOSPHATE SODIUM\THIAMINE HYDROCHLORIDE\VITAMIN B COMPLEX
     Indication: PRODUCT USED FOR UNKNOWN INDICATION
     Route: 065

REACTIONS (35)
  - Cardiac ventricular disorder [Recovered/Resolved]
  - Psychomotor hyperactivity [Not Recovered/Not Resolved]
  - Cataract [Unknown]
  - Asthenia [Not Recovered/Not Resolved]
  - Fatigue [Recovered/Resolved]
  - Asthma [Recovered/Resolved]
  - Limb mass [Not Recovered/Not Resolved]
  - Myocardial infarction [Recovered/Resolved]
  - Cholelithiasis [Recovered/Resolved]
  - Drug hypersensitivity [Recovered/Resolved]
  - Vomiting [Recovered/Resolved]
  - Seizure [Recovered/Resolved]
  - Blood pressure decreased [Unknown]
  - Wrong technique in product usage process [Recovered/Resolved]
  - Osteoporosis [Not Recovered/Not Resolved]
  - Overweight [Not Recovered/Not Resolved]
  - Muscular weakness [Unknown]
  - Fall [Recovered/Resolved]
  - Respiratory arrest [Recovered/Resolved]
  - Kidney infection [Unknown]
  - Diverticulitis [Unknown]
  - Dysstasia [Not Recovered/Not Resolved]
  - Low density lipoprotein increased [Unknown]
  - Cognitive disorder [Not Recovered/Not Resolved]
  - Injection site pain [Recovered/Resolved]
  - Blood viscosity decreased [Unknown]
  - Dyspnoea [Recovered/Resolved]
  - Cystitis [Recovered/Resolved]
  - Urinary tract infection [Recovered/Resolved]
  - Crying [Not Recovered/Not Resolved]
  - Chronic obstructive pulmonary disease [Not Recovered/Not Resolved]
  - Eyelid ptosis [Recovered/Resolved]
  - Hypertonic bladder [Not Recovered/Not Resolved]
  - Ligament sprain [Recovered/Resolved]
  - Gait disturbance [Recovered/Resolved]

NARRATIVE: CASE EVENT DATE: 2000
